FAERS Safety Report 13479105 (Version 1)
Quarter: 2017Q2

REPORT INFORMATION
  Report Type: Spontaneous
  Country: US (occurrence: US)
  Receive Date: 20170425
  Receipt Date: 20170425
  Transmission Date: 20170830
  Serious: No
  Sender: FDA-Public Use
  Company Number: None

PATIENT
  Age: 78 Year
  Sex: Female
  Weight: 65.83 kg

DRUGS (7)
  1. CARDIVOL [Concomitant]
  2. MULTI VITAMIN [Concomitant]
     Active Substance: VITAMINS
  3. C [Concomitant]
  4. XARELTO [Suspect]
     Active Substance: RIVAROXABAN
     Indication: CARDIAC DISORDER
     Dosage: 1 ML  1 PER DAY (NIGHT) ONCE MOUTH
     Route: 048
     Dates: start: 20170101, end: 20170413
  5. VALSARTAN. [Concomitant]
     Active Substance: VALSARTAN
  6. FLAX [Concomitant]
  7. VITAMIN D3 [Concomitant]
     Active Substance: CHOLECALCIFEROL

REACTIONS (2)
  - Dry skin [None]
  - Alopecia [None]

NARRATIVE: CASE EVENT DATE: 201702
